FAERS Safety Report 11887836 (Version 3)
Quarter: 2016Q1

REPORT INFORMATION
  Report Type: Spontaneous
  Country: US (occurrence: US)
  Receive Date: 20160105
  Receipt Date: 20160201
  Transmission Date: 20160526
  Serious: No
  Sender: FDA-Public Use
  Company Number: US-ASTRAZENECA-2015SF11459

PATIENT
  Age: 907 Month
  Sex: Male
  Weight: 98.4 kg

DRUGS (19)
  1. WARFARIN [Concomitant]
     Active Substance: WARFARIN
     Indication: HEART VALVE REPLACEMENT
     Route: 048
  2. IRON [Concomitant]
     Active Substance: IRON
     Route: 048
  3. METOLAZONE. [Concomitant]
     Active Substance: METOLAZONE
     Indication: CORONARY ARTERY DISEASE
     Route: 048
  4. PRAVASTATIN [Concomitant]
     Active Substance: PRAVASTATIN\PRAVASTATIN SODIUM
     Indication: BLOOD CHOLESTEROL INCREASED
     Route: 048
  5. SPIRONOLACTONE. [Concomitant]
     Active Substance: SPIRONOLACTONE
     Indication: CORONARY ARTERY DISEASE
     Route: 048
  6. TAMSULOSIN [Concomitant]
     Active Substance: TAMSULOSIN
     Indication: PROSTATE INFECTION
     Route: 048
  7. HUMALOG, INSULIN [Concomitant]
     Indication: TYPE 2 DIABETES MELLITUS
     Route: 058
  8. CINAMMON [Concomitant]
     Indication: GENERAL PHYSICAL CONDITION ABNORMAL
     Route: 048
  9. CYCLOBENZAPRINE [Concomitant]
     Active Substance: CYCLOBENZAPRINE
     Route: 048
  10. FISH OIL [Concomitant]
     Active Substance: FISH OIL
     Indication: GENERAL PHYSICAL CONDITION ABNORMAL
     Route: 048
  11. COLLAGEN [Concomitant]
     Active Substance: COLLAGEN
     Route: 048
  12. CARVEDILOL. [Concomitant]
     Active Substance: CARVEDILOL
     Indication: CORONARY ARTERY DISEASE
     Route: 048
  13. LANTUS, INSULIN [Concomitant]
     Indication: TYPE 2 DIABETES MELLITUS
     Route: 058
  14. AMIODARONE [Concomitant]
     Active Substance: AMIODARONE
     Indication: CORONARY ARTERY DISEASE
     Route: 048
  15. BYDUREON [Suspect]
     Active Substance: EXENATIDE
     Indication: TYPE 2 DIABETES MELLITUS
     Route: 058
     Dates: start: 201512
  16. ALLOPURINOL. [Concomitant]
     Active Substance: ALLOPURINOL
     Indication: GOUT
     Route: 048
  17. MELOXICAM. [Concomitant]
     Active Substance: MELOXICAM
     Route: 048
  18. VITAMIN D [Concomitant]
     Active Substance: CHOLECALCIFEROL
     Indication: GENERAL PHYSICAL CONDITION ABNORMAL
     Route: 048
  19. POTASSIUM [Concomitant]
     Active Substance: POTASSIUM
     Indication: SUPPLEMENTATION THERAPY
     Route: 048

REACTIONS (6)
  - Drug dose omission [Unknown]
  - Muscle spasms [Recovered/Resolved]
  - Injection site haemorrhage [Recovered/Resolved]
  - Product label issue [Unknown]
  - Injection site discolouration [Unknown]
  - Product quality issue [Unknown]

NARRATIVE: CASE EVENT DATE: 201512
